FAERS Safety Report 21881702 (Version 1)
Quarter: 2023Q1

REPORT INFORMATION
  Report Type: Spontaneous
  Country: DE (occurrence: DE)
  Receive Date: 20230119
  Receipt Date: 20230119
  Transmission Date: 20230418
  Serious: Yes (Hospitalization)
  Sender: FDA-Public Use
  Company Number: DE-ADRED-06041-01

PATIENT
  Age: 86 Year
  Sex: Female
  Weight: 64 kg

DRUGS (8)
  1. INSULIN LISPRO [Suspect]
     Active Substance: INSULIN LISPRO
     Dosage: 300 IU, 0-0-0-9, SOLUTION FOR INJECTION/INFUSION
     Route: 058
  2. INSULIN HUMAN [Suspect]
     Active Substance: INSULIN HUMAN
     Dosage: UNK, 300 IU, 0-0-0-9, SOLUTION FOR INJECTION/INFUSION
     Route: 058
  3. TAPENTADOL [Concomitant]
     Active Substance: TAPENTADOL
     Dosage: UNK, 58.24 MG, 1-0-1-0, TABLETS
     Route: 048
  4. CARVEDILOL [Concomitant]
     Active Substance: CARVEDILOL
     Dosage: UNK, 25 MG, 1-0-0-0, TABLETS
     Route: 048
  5. METAMIZOLE [Concomitant]
     Active Substance: METAMIZOLE
     Dosage: UNK, 500MG, 1-0-1-0, TABLETS
     Route: 048
  6. CANDESARTAN [Concomitant]
     Active Substance: CANDESARTAN
     Dosage: UNK, 16 MG, 1-0-0-0, TABLETS
     Route: 048
  7. LEVOTHYROXINUM NATRICUM [Concomitant]
     Dosage: UNK, 50MCG, 1-0-0-0, TABLETS
     Route: 048
  8. SIMVASTATIN [Concomitant]
     Active Substance: SIMVASTATIN
     Dosage: UNK, 40 MG, 0-0-1-0, TABLETS
     Route: 048

REACTIONS (8)
  - Musculoskeletal pain [Unknown]
  - Confusional state [Unknown]
  - Rash [Unknown]
  - Malaise [Unknown]
  - Hypertension [Unknown]
  - General physical health deterioration [Unknown]
  - Hyperglycaemia [Unknown]
  - Pruritus [Unknown]
